FAERS Safety Report 8006730-7 (Version None)
Quarter: 2011Q4

REPORT INFORMATION
  Report Type: 
  Country: None (occurrence: None)
  Receive Date: 20111227
  Receipt Date: 20111216
  Transmission Date: 20120403
  Serious: Yes (Hospitalization, Other)
  Sender: FDA-Public Use
  Company Number: US-BAYER-2011-050483

PATIENT
  Age: 22 Year
  Sex: Female
  Weight: 70.295 kg

DRUGS (16)
  1. MULTI-VITAMIN [Concomitant]
  2. METHADONE HCL [Concomitant]
  3. PREDNISONE TAB [Concomitant]
  4. YAZ [Suspect]
     Indication: CONTRACEPTION
  5. YAZ [Suspect]
     Indication: PREMENSTRUAL SYNDROME
  6. DETROL LA [Concomitant]
  7. YAZ [Suspect]
  8. FLONASE [Concomitant]
     Indication: HYPERSENSITIVITY
     Dosage: 2 NASAL SPRAYS, DAILY OR AS NEEDED
  9. ZOFRAN [Concomitant]
  10. PERCOCET [Concomitant]
  11. ZYRTEC [Concomitant]
  12. PERCOCET [Concomitant]
     Dosage: UNK UNK, PRN
  13. BENADRYL [Concomitant]
  14. MOTRIN [Concomitant]
  15. PROBIOTICS [Concomitant]
  16. YAZ [Suspect]
     Indication: ACNE
     Dosage: UNK
     Dates: start: 20060101, end: 20070101

REACTIONS (5)
  - CHOLECYSTITIS CHRONIC [None]
  - PAIN [None]
  - GALLBLADDER DISORDER [None]
  - NEPHROLITHIASIS [None]
  - RENAL DISORDER [None]
